FAERS Safety Report 4738536-6 (Version None)
Quarter: 2005Q3

REPORT INFORMATION
  Report Type: 
  Country: None (occurrence: None)
  Receive Date: 20050809
  Receipt Date: 20050722
  Transmission Date: 20060218
  Serious: Yes (Other)
  Sender: FDA-Public Use
  Company Number: PHBS2005NL10709

PATIENT
  Age: 41 Year
  Sex: Female

DRUGS (1)
  1. LAMISIL [Suspect]
     Indication: NAIL TINEA
     Dosage: 250 MG, QD
     Route: 048
     Dates: start: 20050627, end: 20050717

REACTIONS (10)
  - BLOOD PRESSURE DECREASED [None]
  - EYE SWELLING [None]
  - FLUID RETENTION [None]
  - MYALGIA [None]
  - OROPHARYNGEAL SWELLING [None]
  - PRURITUS [None]
  - PYREXIA [None]
  - SWELLING FACE [None]
  - SYNCOPE [None]
  - URTICARIA [None]
